FAERS Safety Report 22384355 (Version 1)
Quarter: 2023Q2

REPORT INFORMATION
  Report Type: Spontaneous
  Country: US (occurrence: None)
  Receive Date: 20230527
  Receipt Date: 20230527
  Transmission Date: 20230721
  Serious: No
  Sender: FDA-Public Use
  Company Number: None

PATIENT
  Age: 69 Year
  Sex: Female
  Weight: 63 kg

DRUGS (1)
  1. VENOFER [Suspect]
     Active Substance: IRON SUCROSE
     Indication: Anaemia
     Dosage: OTHER FREQUENCY : WEEKLY X5;?
     Route: 041
     Dates: start: 20230520, end: 20230527

REACTIONS (2)
  - Chest discomfort [None]
  - Burning sensation [None]

NARRATIVE: CASE EVENT DATE: 20230527
